FAERS Safety Report 17074623 (Version 1)
Quarter: 2019Q4

REPORT INFORMATION
  Report Type: Spontaneous
  Country: US (occurrence: US)
  Receive Date: 20191028
  Receipt Date: 20191028
  Transmission Date: 20200122
  Serious: Yes (Hospitalization)
  Sender: FDA-Public Use
  Company Number: None

PATIENT
  Age: 59 Year
  Sex: Female

DRUGS (17)
  1. TRELEGY AER ELLIPTA [Concomitant]
  2. FENOFIBRATE TAB [Concomitant]
  3. BUMETANIDE TAB [Concomitant]
  4. LOSARTAN POT TAB [Concomitant]
  5. FUROSEMIDE TAB [Concomitant]
  6. D3 CAP [Concomitant]
  7. METFORMIN TAB [Concomitant]
  8. CONTOUR TES NEXT [Concomitant]
  9. MONTELUKAST TAB [Concomitant]
  10. ROSUVASTATIN TAB [Concomitant]
     Active Substance: ROSUVASTATIN
  11. NUCALA [Suspect]
     Active Substance: MEPOLIZUMAB
     Dosage: ?          OTHER FREQUENCY:1 X EVERY 4 WKS;?
     Route: 058
     Dates: start: 20181026
  12. HUMULIN R INJ [Concomitant]
  13. KLOR-CON PAK [Concomitant]
  14. METOPROL SUC TAB [Concomitant]
  15. MICROLET MIS LANCETS [Concomitant]
  16. ALBUTEROL AER HFA [Concomitant]
  17. ELIQUIS [Concomitant]
     Active Substance: APIXABAN

REACTIONS (2)
  - Dyspnoea [None]
  - Product dose omission [None]
